FAERS Safety Report 23946399 (Version 1)
Quarter: 2024Q2

REPORT INFORMATION
  Report Type: Spontaneous
  Country: US (occurrence: US)
  Receive Date: 20240606
  Receipt Date: 20240606
  Transmission Date: 20240716
  Serious: No
  Sender: FDA-Public Use
  Company Number: US-MYCOVIA PHARMACEUTICALS, INC-MY-2023-000009

PATIENT
  Sex: Female

DRUGS (3)
  1. VIVJOA [Suspect]
     Active Substance: OTESECONAZOLE
     Indication: Vulvovaginal candidiasis
     Dosage: 4 CAPSULES, ON DAY 1
     Route: 048
  2. VIVJOA [Suspect]
     Active Substance: OTESECONAZOLE
     Dosage: 3 CAPSULES, ON DAY 2
     Route: 048
  3. VIVJOA [Suspect]
     Active Substance: OTESECONAZOLE
     Dosage: UNK, ON DAY FOURTEEN TAKE ONE CAPSULE EVERY SEVEN DAYS WEEKS TWO THROUGH TWELVE
     Route: 048

REACTIONS (2)
  - Inappropriate schedule of product administration [Unknown]
  - Circumstance or information capable of leading to medication error [Unknown]

NARRATIVE: CASE EVENT DATE: 20230327
